FAERS Safety Report 8199392-X (Version None)
Quarter: 2012Q1

REPORT INFORMATION
  Report Type: 
  Country: None (occurrence: None)
  Receive Date: 20120309
  Receipt Date: 20120307
  Transmission Date: 20120608
  Serious: Yes (Other)
  Sender: FDA-Public Use
  Company Number: BR-ROCHE-745023

PATIENT
  Sex: Female
  Weight: 61 kg

DRUGS (8)
  1. ASCORBIC ACID [Concomitant]
  2. PREDNISOLONE [Concomitant]
     Indication: PREMEDICATION
     Dates: start: 20101123, end: 20101123
  3. OMEPRAZOLE [Concomitant]
  4. ALPRAZOLAM [Concomitant]
  5. DEFLAZACORT [Concomitant]
  6. MABTHERA [Suspect]
     Indication: RHEUMATOID ARTHRITIS
     Dosage: FORM: INFUSION
     Route: 065
     Dates: start: 20101101, end: 20120305
  7. CALCIUM [Concomitant]
  8. RANITIDINE [Concomitant]

REACTIONS (12)
  - CHEST PAIN [None]
  - INFLUENZA [None]
  - ALOPECIA [None]
  - MUSCLE SPASMS [None]
  - DRUG INEFFECTIVE [None]
  - OROPHARYNGEAL PAIN [None]
  - PLEURAL EFFUSION [None]
  - LARYNGEAL OEDEMA [None]
  - THROAT IRRITATION [None]
  - HYPOAESTHESIA [None]
  - MUSCULOSKELETAL PAIN [None]
  - ARTHRALGIA [None]
